FAERS Safety Report 8496299-5 (Version None)
Quarter: 2012Q3

REPORT INFORMATION
  Report Type: 
  Country: None (occurrence: None)
  Receive Date: 20120709
  Receipt Date: 20120626
  Transmission Date: 20120928
  Serious: No
  Sender: FDA-Public Use
  Company Number: US-ASTRAZENECA-2012SE43151

PATIENT
  Age: 69 Year
  Sex: Female

DRUGS (3)
  1. PLAVIX [Concomitant]
  2. ASPIRIN [Concomitant]
  3. BRILINTA [Suspect]
     Route: 048

REACTIONS (3)
  - CHEST PAIN [None]
  - URTICARIA [None]
  - DYSPNOEA [None]
